FAERS Safety Report 12388290 (Version 1)
Quarter: 2016Q2

REPORT INFORMATION
  Report Type: Spontaneous
  Country: US (occurrence: None)
  Receive Date: 20160519
  Receipt Date: 20160519
  Transmission Date: 20160815
  Serious: No
  Sender: FDA-Public Use
  Company Number: None

PATIENT
  Age: 19 Year
  Sex: Male

DRUGS (1)
  1. GENTAMICIN SULFATE 40MG/20ML FRESENIUS KABI USA [Suspect]
     Active Substance: GENTAMICIN SULFATE
     Indication: SUBACUTE ENDOCARDITIS
     Route: 042
     Dates: start: 20160506, end: 20160511

REACTIONS (2)
  - Therapy cessation [None]
  - Tinnitus [None]

NARRATIVE: CASE EVENT DATE: 20160511
